FAERS Safety Report 17819704 (Version 1)
Quarter: 2020Q2

REPORT INFORMATION
  Report Type: Report from Study
  Country: CO (occurrence: CO)
  Receive Date: 20200524
  Receipt Date: 20200524
  Transmission Date: 20200714
  Serious: Yes (Other)
  Sender: FDA-Public Use
  Company Number: NVSC2020CO093369

PATIENT
  Age: 72 Year
  Sex: Female
  Weight: 61 kg

DRUGS (4)
  1. SANDOSTATIN LAR DEPOT [Suspect]
     Active Substance: OCTREOTIDE ACETATE
     Dosage: UNK (STARTED 20 YEARS AGO)
     Route: 030
     Dates: end: 202001
  2. LEPRIT [Concomitant]
     Indication: PRODUCT USED FOR UNKNOWN INDICATION
     Dosage: UNK, Q8H
     Route: 048
  3. SANDOSTATIN LAR DEPOT [Suspect]
     Active Substance: OCTREOTIDE ACETATE
     Indication: PANCREATIC CARCINOMA
     Dosage: UNK
     Route: 065
  4. ENALAPRIL [Concomitant]
     Active Substance: ENALAPRIL
     Indication: HYPERTENSION
     Dosage: 20 MG, UNKNOWN
     Route: 048

REACTIONS (8)
  - Product dose omission [Unknown]
  - Abdominal pain [Unknown]
  - Hepatic neoplasm [Unknown]
  - Decreased appetite [Unknown]
  - Weight decreased [Unknown]
  - Investigation abnormal [Unknown]
  - Biopsy breast abnormal [Unknown]
  - Product use in unapproved indication [Unknown]

NARRATIVE: CASE EVENT DATE: 201910
